FAERS Safety Report 8261667 (Version 2)
Quarter: 2013Q3

REPORT INFORMATION
  Report Type: Report from Study
  Country: GB (occurrence: GB)
  Receive Date: 20111123
  Receipt Date: 20130924
  Transmission Date: 20140515
  Serious: Yes (Hospitalization)
  Sender: FDA-Public Use
  Company Number: GB-JNJFOC-20111107708

PATIENT
  Age: 81 Year
  Sex: Female

DRUGS (3)
  1. REMICADE [Suspect]
     Indication: RHEUMATOID ARTHRITIS
     Route: 042
     Dates: start: 20041102, end: 20100727
  2. METHOTREXATE [Concomitant]
  3. SULPHASALAZINE [Concomitant]

REACTIONS (7)
  - Peripheral vascular disorder [Unknown]
  - Fall [Unknown]
  - Infected skin ulcer [Recovering/Resolving]
  - Cataract [Unknown]
  - Foot operation [Unknown]
  - Orthopaedic procedure [Unknown]
  - Spinal decompression [Unknown]
